FAERS Safety Report 24343542 (Version 1)
Quarter: 2024Q3

REPORT INFORMATION
  Report Type: Spontaneous
  Country: JP (occurrence: JP)
  Receive Date: 20240920
  Receipt Date: 20240920
  Transmission Date: 20241016
  Serious: Yes (Other)
  Sender: PFIZER
  Company Number: JP-PFIZER INC-PV202400100025

PATIENT
  Age: 3 Month
  Sex: Male
  Weight: 5 kg

DRUGS (4)
  1. SIROLIMUS [Suspect]
     Active Substance: SIROLIMUS
     Indication: Lymphangioma
     Dosage: 0.1 MG,1 D, GRANULE
     Route: 048
     Dates: start: 20240712
  2. SIROLIMUS [Suspect]
     Active Substance: SIROLIMUS
     Indication: Gorham^s disease
  3. INDERAL [Concomitant]
     Active Substance: PROPRANOLOL HYDROCHLORIDE
     Indication: Gorham^s disease
     Dosage: UNK
     Route: 065
     Dates: start: 20240722
  4. INDERAL [Concomitant]
     Active Substance: PROPRANOLOL HYDROCHLORIDE
     Indication: Pleural effusion

REACTIONS (4)
  - Neutrophil count decreased [Recovered/Resolved]
  - Bacterial sepsis [Recovered/Resolved]
  - Bacillus infection [Recovered/Resolved]
  - Off label use [Unknown]

NARRATIVE: CASE EVENT DATE: 20240718
